FAERS Safety Report 13246824 (Version 1)
Quarter: 2017Q1

REPORT INFORMATION
  Report Type: Spontaneous
  Country: US (occurrence: US)
  Receive Date: 20170217
  Receipt Date: 20170217
  Transmission Date: 20170428
  Serious: No
  Sender: FDA-Public Use
  Company Number: US-PERRIGO-16US000296

PATIENT
  Age: 68 Year
  Sex: Female
  Weight: 54.42 kg

DRUGS (1)
  1. CETIRIZINE HYDROCHLORIDE. [Suspect]
     Active Substance: CETIRIZINE HYDROCHLORIDE
     Indication: PRURITUS
     Dosage: 10 MG, QD
     Route: 048
     Dates: start: 20160105

REACTIONS (6)
  - Drug administered to patient of inappropriate age [Unknown]
  - Dry throat [Unknown]
  - Dry mouth [Unknown]
  - Somnolence [Recovered/Resolved]
  - Insomnia [Unknown]
  - Off label use [Unknown]

NARRATIVE: CASE EVENT DATE: 20160105
